FAERS Safety Report 24559959 (Version 1)
Quarter: 2024Q4

REPORT INFORMATION
  Report Type: Spontaneous
  Country: US (occurrence: None)
  Receive Date: 20241028
  Receipt Date: 20241028
  Transmission Date: 20250114
  Serious: No
  Sender: Public
  Company Number: None

PATIENT
  Age: 75 Year
  Sex: Female

DRUGS (1)
  1. ENBREL [Suspect]
     Active Substance: ETANERCEPT
     Indication: Spinal osteoarthritis
     Dosage: FREQUENCY : AS DIRECTED;?
     Route: 058
     Dates: start: 202311

REACTIONS (3)
  - Circulatory collapse [None]
  - Urinary tract infection [None]
  - Dehydration [None]
